FAERS Safety Report 5449099-4 (Version None)
Quarter: 2007Q3

REPORT INFORMATION
  Report Type: 
  Country: None (occurrence: None)
  Receive Date: 20070911
  Receipt Date: 20070904
  Transmission Date: 20080115
  Serious: Yes (Other)
  Sender: FDA-Public Use
  Company Number: US-ELI_LILLY_AND_COMPANY-US200709000336

PATIENT
  Sex: Male

DRUGS (2)
  1. XIGRIS [Suspect]
     Indication: SEPSIS
     Dates: start: 20070901, end: 20070903
  2. XIGRIS [Suspect]
     Dosage: UNK, UNK
     Dates: start: 20070904

REACTIONS (2)
  - EXPLORATIVE LAPAROTOMY [None]
  - WOUND DEBRIDEMENT [None]
